FAERS Safety Report 7733484-1 (Version None)
Quarter: 2011Q3

REPORT INFORMATION
  Report Type: 
  Country: None (occurrence: None)
  Receive Date: 20110901
  Receipt Date: 20110824
  Transmission Date: 20111222
  Serious: Yes (Other)
  Sender: FDA-Public Use
  Company Number: 1000023153

PATIENT
  Age: 57 Year
  Sex: Male

DRUGS (4)
  1. NIASPAN [Suspect]
     Dates: start: 20110401
  2. BYSTOLIC [Suspect]
  3. PLAVIX [Suspect]
  4. SIMVASTATIN [Concomitant]

REACTIONS (7)
  - FLUSHING [None]
  - SCAB [None]
  - ATRIOVENTRICULAR BLOCK [None]
  - EPISTAXIS [None]
  - PRURITUS [None]
  - FATIGUE [None]
  - SOMNOLENCE [None]
